FAERS Safety Report 25884135 (Version 1)
Quarter: 2025Q4

REPORT INFORMATION
  Report Type: Report from Study
  Country: EU (occurrence: EU)
  Receive Date: 20251006
  Receipt Date: 20251006
  Transmission Date: 20260118
  Serious: Yes (Death, Other)
  Sender: PFIZER
  Company Number: EU-PFIZER INC-202500196782

PATIENT
  Age: 73 Year
  Sex: Male

DRUGS (2)
  1. VORICONAZOLE [Suspect]
     Active Substance: VORICONAZOLE
     Indication: Fungaemia
     Dosage: 4 MG/KG, 2X/DAY X 10 DAYS
  2. VORICONAZOLE [Suspect]
     Active Substance: VORICONAZOLE
     Dosage: 4 MG/KG, 2X/DAY X 17 DAYS

REACTIONS (1)
  - Drug ineffective [Fatal]
